FAERS Safety Report 12936733 (Version 1)
Quarter: 2016Q4

REPORT INFORMATION
  Report Type: Spontaneous
  Country: US (occurrence: US)
  Receive Date: 20161114
  Receipt Date: 20161114
  Transmission Date: 20170207
  Serious: No
  Sender: FDA-Public Use
  Company Number: US-ASTRAZENECA-2016SF16054

PATIENT
  Age: 715 Month
  Sex: Female
  Weight: 68 kg

DRUGS (12)
  1. FIORICET  WITH CODEINE NUMBER 3 [Concomitant]
     Dosage: EVERY SIX HOURS
     Route: 048
     Dates: start: 2006
  2. MOVANTIK [Suspect]
     Active Substance: NALOXEGOL OXALATE
     Indication: CONSTIPATION
     Route: 048
     Dates: end: 201609
  3. RELISTOR [Concomitant]
     Active Substance: METHYLNALTREXONE BROMIDE
  4. PLAVIX [Concomitant]
     Active Substance: CLOPIDOGREL BISULFATE
     Indication: CARDIAC DISORDER
     Route: 048
     Dates: start: 2010
  5. LINZESS [Concomitant]
     Active Substance: LINACLOTIDE
  6. ASPIRIN. [Concomitant]
     Active Substance: ASPIRIN
     Route: 048
     Dates: start: 2010
  7. AMITIZA [Concomitant]
     Active Substance: LUBIPROSTONE
  8. SYNTHROID [Concomitant]
     Active Substance: LEVOTHYROXINE SODIUM
     Indication: THYROID DISORDER
     Route: 048
     Dates: start: 2012
  9. OTC MEDICATION [Concomitant]
     Active Substance: UNSPECIFIED INGREDIENT
     Indication: CONSTIPATION
  10. MOVANTIK [Suspect]
     Active Substance: NALOXEGOL OXALATE
     Indication: CONSTIPATION
     Route: 048
     Dates: end: 201609
  11. TOPAMAX [Concomitant]
     Active Substance: TOPIRAMATE
     Indication: MIGRAINE
     Route: 048
     Dates: start: 2012
  12. SIMVASTATIN. [Concomitant]
     Active Substance: SIMVASTATIN
     Indication: CARDIAC DISORDER
     Route: 048
     Dates: start: 2010

REACTIONS (6)
  - Migraine [Unknown]
  - Insomnia [Unknown]
  - Abdominal distension [Unknown]
  - Intentional product misuse [Unknown]
  - Feeling abnormal [Unknown]
  - Constipation [Unknown]

NARRATIVE: CASE EVENT DATE: 201609
